FAERS Safety Report 17674646 (Version 1)
Quarter: 2020Q2

REPORT INFORMATION
  Report Type: Spontaneous
  Country: DE (occurrence: DE)
  Receive Date: 20200416
  Receipt Date: 20200416
  Transmission Date: 20200714
  Serious: Yes (Hospitalization, Other)
  Sender: FDA-Public Use
  Company Number: DE-TEVA-2020-DE-1223576

PATIENT
  Age: 72 Year
  Sex: Female
  Weight: 59 kg

DRUGS (10)
  1. REMICADE [Suspect]
     Active Substance: INFLIXIMAB
     Indication: TEMPORAL ARTERITIS
     Route: 042
  2. EUTHYROX [Concomitant]
     Active Substance: LEVOTHYROXINE SODIUM
     Dosage: DOSAGE FORM: UNSPECIFIED:50 MICROGRAM
     Route: 065
  3. AUGMENTAN [Concomitant]
     Active Substance: AMOXICILLIN\CLAVULANATE POTASSIUM
     Dosage: DOSAGE FORM: UNSPECIFIED, 875/125
     Route: 065
  4. ACTONEL [Concomitant]
     Active Substance: RISEDRONATE SODIUM
     Dosage: DOSAGE FORM: UNSPECIFIED:5 MILLIGRAM
     Route: 065
  5. PLAVIX [Concomitant]
     Active Substance: CLOPIDOGREL BISULFATE
     Dosage: DOSAGE FORM: UNSPECIFIED:75 MILLIGRAM
     Route: 065
  6. FOLSAN [Concomitant]
     Active Substance: FOLIC ACID
     Dosage: DOSAGE FORM: UNSPECIFIED
     Route: 065
  7. METHOTREXATE (METHOTREXATE SODIUM) [Suspect]
     Active Substance: METHOTREXATE SODIUM
     Dosage: DOSAGE FORM: UNSPECIFIED, 15-20 MG
     Route: 065
  8. ASPIRIN. [Concomitant]
     Active Substance: ASPIRIN
     Dosage: DOSAGE FORM: UNSPECIFIED:100 GRAM
     Route: 065
  9. DECORTIN H [Concomitant]
     Active Substance: PREDNISOLONE
     Dosage: DOSAGE FORM: UNSPECIFIED:15  MILLIGRAM
     Route: 065
  10. CONCOR [Concomitant]
     Active Substance: BISOPROLOL FUMARATE
     Dosage: DOSAGE FORM: UNSPECIFIED:2.5 MILLIGRAM
     Route: 065

REACTIONS (19)
  - Disturbance in attention [Unknown]
  - Nausea [Unknown]
  - Tuberculosis of central nervous system [Not Recovered/Not Resolved]
  - Cough [Unknown]
  - General physical health deterioration [Unknown]
  - Psychotic disorder [Unknown]
  - Disseminated tuberculosis [Recovering/Resolving]
  - Meningitis tuberculous [Not Recovered/Not Resolved]
  - Pyrexia [Unknown]
  - Hepatic enzyme increased [Unknown]
  - Vasculitis [Unknown]
  - Urinary tract infection [Unknown]
  - Peroneal nerve palsy [Unknown]
  - Pulmonary tuberculosis [Unknown]
  - Enterococcal infection [Unknown]
  - Urticaria [Unknown]
  - Encephalitis [Not Recovered/Not Resolved]
  - Sepsis [Unknown]
  - Vomiting [Unknown]

NARRATIVE: CASE EVENT DATE: 200701
